FAERS Safety Report 10135974 (Version 1)
Quarter: 2014Q2

REPORT INFORMATION
  Report Type: Spontaneous
  Country: US (occurrence: US)
  Receive Date: 20140429
  Receipt Date: 20140429
  Transmission Date: 20141212
  Serious: No
  Sender: FDA-Public Use
  Company Number: US-B.I. PHARMACEUTICALS,INC./RIDGEFIELD-2014-BI-18031BP

PATIENT
  Sex: Male

DRUGS (7)
  1. COMBIVENT [Suspect]
     Indication: CHRONIC OBSTRUCTIVE PULMONARY DISEASE
     Dosage: STRENGTH: 18 MCG / 103 MCG; DAILY DOSE: 144 MCG/ 1024 MCG
     Route: 055
     Dates: start: 1996, end: 2014
  2. PROVENTIL [Concomitant]
     Route: 055
  3. LORATIDINE [Concomitant]
     Route: 048
  4. MONTELUKAST [Concomitant]
     Route: 048
  5. DIAZEPAM [Concomitant]
     Route: 048
  6. ASPIRIN [Concomitant]
     Route: 048
  7. OXYCODONE [Concomitant]
     Route: 048

REACTIONS (5)
  - Abdominal discomfort [Not Recovered/Not Resolved]
  - Lung disorder [Recovered/Resolved]
  - Chest pain [Not Recovered/Not Resolved]
  - Fatigue [Not Recovered/Not Resolved]
  - Tremor [Not Recovered/Not Resolved]
